FAERS Safety Report 8022865 (Version 3)
Quarter: 2012Q4

REPORT INFORMATION
  Report Type: Report from Study
  Country: IN (occurrence: IN)
  Receive Date: 20110706
  Receipt Date: 20120830
  Transmission Date: 20130627
  Serious: Yes (Other)
  Sender: FDA-Public Use
  Company Number: IN-BRISTOL-MYERS SQUIBB COMPANY-15805609

PATIENT
  Age: 70 Year
  Sex: Male

DRUGS (11)
  1. SAXAGLIPTIN [Suspect]
     Indication: TYPE 2 DIABETES MELLITUS
     Dates: start: 20101214
  2. METFORMIN HYDROCHLORIDE [Suspect]
     Indication: TYPE 2 DIABETES MELLITUS
     Dates: start: 20100416, end: 20110602
  3. GLIMEPIRIDE [Suspect]
     Indication: TYPE 2 DIABETES MELLITUS
     Dosage: tabs
     Dates: start: 20100416, end: 20110602
  4. CLOPITAB [Concomitant]
     Dosage: tabs
     Dates: start: 20090221, end: 20110602
  5. AMLODIPINE [Concomitant]
     Dosage: tab amlopress AT 1 DF: 5/50mg
     Dates: start: 20090221
  6. OLMESARTAN MEDOXOMIL [Concomitant]
     Dosage: Olmy tabs
     Dates: start: 20100618
  7. STALTOR [Concomitant]
     Dates: start: 20090221, end: 20110602
  8. UDILIV [Concomitant]
     Dosage: tabs
     Dates: start: 20110602
  9. INSULIN [Concomitant]
     Dosage: 1DF:20 Units
Insulin Inj 30/70
     Dates: start: 20110602
  10. VITAMIN [Concomitant]
  11. ZINC [Concomitant]

REACTIONS (3)
  - Drug-induced liver injury [Not Recovered/Not Resolved]
  - Cholecystitis chronic [Unknown]
  - Pancreatitis [Not Recovered/Not Resolved]
